FAERS Safety Report 6262296-3 (Version None)
Quarter: 2009Q3

REPORT INFORMATION
  Report Type: 
  Country: None (occurrence: None)
  Receive Date: 20090709
  Receipt Date: 20090627
  Transmission Date: 20100115
  Serious: Yes (Other)
  Sender: FDA-Public Use
  Company Number: DE-PFIZER INC-2009230839

PATIENT

DRUGS (1)
  1. CABERGOLINE [Suspect]
     Indication: PROLACTINOMA
     Dosage: 0.5 MG, WEEKLY
     Route: 048
     Dates: start: 20090201

REACTIONS (4)
  - BLOOD CORTICOTROPHIN DECREASED [None]
  - BLOOD CORTISOL INCREASED [None]
  - DEXAMETHASONE SUPPRESSION TEST NEGATIVE [None]
  - NEUROENDOCRINE TUMOUR [None]
